FAERS Safety Report 6082700-3 (Version None)
Quarter: 2009Q1

REPORT INFORMATION
  Report Type: 
  Country: None (occurrence: None)
  Receive Date: 20090218
  Receipt Date: 20090216
  Transmission Date: 20090719
  Serious: Yes (Death, Hospitalization)
  Sender: FDA-Public Use
  Company Number: PHHY2008FR25819

PATIENT
  Sex: Male

DRUGS (4)
  1. COMTAN [Suspect]
     Indication: EXTRAPYRAMIDAL DISORDER
     Dosage: 1600 MG DAILY
     Route: 048
     Dates: start: 20040101, end: 20080919
  2. MANTADIX [Suspect]
     Indication: EXTRAPYRAMIDAL DISORDER
     Dosage: 800 MG DAILY
     Route: 048
     Dates: start: 20040101, end: 20080927
  3. ATENOLOL [Suspect]
     Indication: HYPERTENSION
     Dosage: 50 MG, BID
     Route: 048
     Dates: start: 20030101
  4. PLAVIX [Suspect]
     Indication: STENT PLACEMENT
     Dosage: 75 MG, QD
     Route: 048
     Dates: start: 20040101, end: 20080927

REACTIONS (6)
  - CONCOMITANT DISEASE AGGRAVATED [None]
  - DEHYDRATION [None]
  - PARKINSON'S DISEASE [None]
  - PYREXIA [None]
  - VASCULITIC RASH [None]
  - VASCULITIS [None]
